FAERS Safety Report 15862313 (Version 1)
Quarter: 2019Q1

REPORT INFORMATION
  Report Type: Spontaneous
  Country: IT (occurrence: IT)
  Receive Date: 20190124
  Receipt Date: 20190124
  Transmission Date: 20190417
  Serious: Yes (Other)
  Sender: FDA-Public Use
  Company Number: IT-HQ SPECIALTY-IT-2019INT000013

PATIENT

DRUGS (21)
  1. PHENOBARBITAL. [Concomitant]
     Active Substance: PHENOBARBITAL
     Dosage: 3 MG/KG, QD
     Route: 065
  2. TOPIRAMATE. [Concomitant]
     Active Substance: TOPIRAMATE
     Indication: EPILEPSY
     Dosage: 5 MG/KG, QD
     Route: 065
  3. POTASSIUM BROMIDE [Concomitant]
     Active Substance: POTASSIUM BROMIDE
     Indication: EPILEPSY
     Dosage: UP TO 45 MG/KG, QD
     Route: 065
  4. QUINIDINE [Suspect]
     Active Substance: QUINIDINE
     Dosage: 70 MG/KG, UNK
     Route: 065
  5. LEVETIRACETAM. [Suspect]
     Active Substance: LEVETIRACETAM
     Indication: EPILEPSY
     Dosage: UP TO 60 MG/KG, QD
     Route: 065
  6. QUINIDINE [Suspect]
     Active Substance: QUINIDINE
     Indication: EPILEPSY
     Dosage: 2 MG/KG, QID
     Route: 065
  7. PHENOBARBITAL. [Concomitant]
     Active Substance: PHENOBARBITAL
     Indication: EPILEPSY
     Dosage: 5 MG/KG, QD
     Route: 065
  8. CLONAZEPAM. [Concomitant]
     Active Substance: CLONAZEPAM
     Indication: EPILEPSY
     Dosage: UP TO 0.2 MG/KG, UNK
     Route: 048
  9. MIDAZOLAM [Concomitant]
     Active Substance: MIDAZOLAM HYDROCHLORIDE
     Indication: EPILEPSY
     Dosage: UP TO 0.2 MG/KG/H
     Route: 065
  10. QUINIDINE [Suspect]
     Active Substance: QUINIDINE
     Dosage: INCREASED EVERY 2-4 DAYS OF 4 TO 5 MG/KG
     Route: 065
  11. QUINIDINE [Suspect]
     Active Substance: QUINIDINE
     Dosage: 45 MG/KG, QD (DIVIDED IN 4 DOSES)
     Route: 065
  12. QUINIDINE [Suspect]
     Active Substance: QUINIDINE
     Dosage: 35 MG/KG, UNK (DOSE WAS HALVED)
     Route: 065
  13. PHENOBARBITAL. [Concomitant]
     Active Substance: PHENOBARBITAL
     Dosage: 8 MG/KG, UNK
     Route: 065
  14. PYRIDOXINE [Concomitant]
     Active Substance: PYRIDOXINE
     Indication: EPILEPSY
     Dosage: 30 MG/KG, UNK
     Route: 048
  15. QUINIDINE [Suspect]
     Active Substance: QUINIDINE
     Dosage: 50 MG/KG, QD
     Route: 065
  16. QUINIDINE [Suspect]
     Active Substance: QUINIDINE
     Dosage: 45 MG/KG, UNK
     Route: 065
  17. QUINIDINE [Suspect]
     Active Substance: QUINIDINE
     Dosage: 35 MG/KG, UNK
     Route: 065
  18. CARBAMAZEPINE. [Concomitant]
     Active Substance: CARBAMAZEPINE
     Indication: EPILEPSY
     Dosage: UNK
     Route: 065
  19. LEVETIRACETAM. [Suspect]
     Active Substance: LEVETIRACETAM
     Dosage: UP TO 100 MG/KG, QD
     Route: 065
  20. LEVETIRACETAM. [Suspect]
     Active Substance: LEVETIRACETAM
     Dosage: 45 MG/KG, QD
     Route: 065
  21. QUINIDINE [Suspect]
     Active Substance: QUINIDINE
     Dosage: 50 MG/KG, QD (SLOWLY TITRATED UPTO THE TARGET DOSE)
     Route: 065

REACTIONS (2)
  - Cardiotoxicity [Recovered/Resolved]
  - Electrocardiogram QT prolonged [Unknown]
